FAERS Safety Report 13121740 (Version 1)
Quarter: 2017Q1

REPORT INFORMATION
  Report Type: Spontaneous
  Country: US (occurrence: US)
  Receive Date: 20170115
  Receipt Date: 20170115
  Transmission Date: 20170428
  Serious: No
  Sender: FDA-Public Use
  Company Number: None

PATIENT
  Age: 34 Year
  Sex: Female
  Weight: 81 kg

DRUGS (5)
  1. GREEN TEA EXTRACT [Concomitant]
  2. VITAMIN D3 [Concomitant]
     Active Substance: CHOLECALCIFEROL
  3. EPINEPHRINE. [Suspect]
     Active Substance: EPINEPHRINE
     Indication: MAST CELL ACTIVATION SYNDROME
     Route: 058
  4. EPINEPHRINE. [Suspect]
     Active Substance: EPINEPHRINE
     Indication: ANAPHYLACTIC REACTION
     Route: 058
  5. QUERCETIN [Concomitant]
     Active Substance: QUERCETIN

REACTIONS (5)
  - Anaphylactic reaction [None]
  - Emotional distress [None]
  - Skin haemorrhage [None]
  - Pain in extremity [None]
  - Drug effect decreased [None]

NARRATIVE: CASE EVENT DATE: 20160916
